FAERS Safety Report 24725087 (Version 1)
Quarter: 2024Q4

REPORT INFORMATION
  Report Type: Spontaneous
  Country: RU (occurrence: RU)
  Receive Date: 20241212
  Receipt Date: 20241212
  Transmission Date: 20250114
  Serious: Yes (Other)
  Sender: HETERO
  Company Number: RU-AMAROX PHARMA-HET2024RU04583

PATIENT
  Sex: Female
  Weight: 77 kg

DRUGS (1)
  1. LAMIVUDINE [Suspect]
     Active Substance: LAMIVUDINE
     Indication: HIV infection
     Dosage: 150 MILLIGRAM, QD (1 INTAKE 2 TABLETS)
     Route: 048
     Dates: start: 20240117, end: 20240712

REACTIONS (1)
  - Hepatotoxicity [Recovering/Resolving]

NARRATIVE: CASE EVENT DATE: 20240715
